FAERS Safety Report 8042962-X (Version None)
Quarter: 2011Q4

REPORT INFORMATION
  Report Type: 
  Country: None (occurrence: None)
  Receive Date: 20111202
  Receipt Date: 20110629
  Transmission Date: 20120403
  Serious: Yes (Hospitalization, Other)
  Sender: FDA-Public Use
  Company Number: 2011SP030596

PATIENT
  Age: 41 Year
  Sex: Female
  Weight: 116.1208 kg

DRUGS (3)
  1. DIPHENHYDRAMINE HCL [Concomitant]
  2. HERBAL SUPPLEMENT [Concomitant]
  3. NUVARING [Suspect]
     Dates: end: 20090701

REACTIONS (2)
  - GALLBLADDER DISORDER [None]
  - THROMBOSIS MESENTERIC VESSEL [None]
